FAERS Safety Report 6957096-2 (Version None)
Quarter: 2010Q3

REPORT INFORMATION
  Report Type: 
  Country: None (occurrence: None)
  Receive Date: 20100831
  Receipt Date: 20100823
  Transmission Date: 20110219
  Serious: No
  Sender: FDA-Public Use
  Company Number: US-BIOGENIDEC-2010BI021110

PATIENT
  Age: 42 Year
  Sex: Male

DRUGS (3)
  1. TYSABRI [Suspect]
     Indication: MULTIPLE SCLEROSIS
     Route: 042
     Dates: start: 20090326
  2. AVONEX [Concomitant]
     Indication: MULTIPLE SCLEROSIS
     Route: 030
     Dates: start: 20010501, end: 20081214
  3. AVONEX [Concomitant]
     Route: 030
     Dates: start: 20081231

REACTIONS (4)
  - DRUG EFFECT DECREASED [None]
  - GENERAL SYMPTOM [None]
  - SENSATION OF HEAVINESS [None]
  - STRESS [None]
